FAERS Safety Report 22196138 (Version 1)
Quarter: 2023Q2

REPORT INFORMATION
  Report Type: Report from Study
  Country: US (occurrence: US)
  Receive Date: 20230411
  Receipt Date: 20230411
  Transmission Date: 20230721
  Serious: Yes (Other)
  Sender: FDA-Public Use
  Company Number: US-ABBVIE-4295014

PATIENT
  Age: 69 Year
  Sex: Male

DRUGS (2)
  1. HUMIRA [Suspect]
     Active Substance: ADALIMUMAB
     Indication: Psoriatic arthropathy
     Dosage: CITRATE FREE? FORM STRENGTH: 40MG
     Route: 058
     Dates: start: 20170308
  2. HUMIRA [Suspect]
     Active Substance: ADALIMUMAB
     Dosage: CITRATE FREE? FORM STRENGTH: 40MG
     Route: 058
     Dates: start: 20210923

REACTIONS (3)
  - Sinusitis [Not Recovered/Not Resolved]
  - Nasal cyst [Recovered/Resolved]
  - Arthralgia [Not Recovered/Not Resolved]

NARRATIVE: CASE EVENT DATE: 20221001
